FAERS Safety Report 4872250-1 (Version None)
Quarter: 2005Q4

REPORT INFORMATION
  Report Type: 
  Country: None (occurrence: None)
  Receive Date: 20051201
  Receipt Date: 20050801
  Transmission Date: 20060501
  Serious: No
  Sender: FDA-Public Use
  Company Number: 2005PV000775

PATIENT
  Age: 53 Year
  Sex: Female
  Weight: 82.1011 kg

DRUGS (17)
  1. BYETTA [Suspect]
     Indication: DIABETES MELLITUS
     Dosage: 5 MCG;BID; SC
     Route: 058
     Dates: start: 20050728
  2. NEXIUM [Concomitant]
  3. AMITRIPTYLINE HCL [Concomitant]
  4. CYCLOBENZAPRINE HCL [Concomitant]
  5. LOTREL [Concomitant]
  6. QUININE SULFATE [Concomitant]
  7. COREG [Concomitant]
  8. NOVOLOG [Concomitant]
  9. LANTUS [Concomitant]
  10. CENTRUM [Concomitant]
  11. VITAMIN D [Concomitant]
  12. CALTRATE [Concomitant]
  13. ASPIRIN [Concomitant]
  14. CRESTOR [Concomitant]
  15. ACTOS [Concomitant]
  16. .. [Concomitant]
  17. .. [Concomitant]

REACTIONS (6)
  - BLOOD GLUCOSE INCREASED [None]
  - DIZZINESS [None]
  - HEADACHE [None]
  - NAUSEA [None]
  - THERAPEUTIC RESPONSE UNEXPECTED [None]
  - VOMITING [None]
